FAERS Safety Report 15755581 (Version 2)
Quarter: 2019Q1

REPORT INFORMATION
  Report Type: Report from Study
  Country: RO (occurrence: RO)
  Receive Date: 20181224
  Receipt Date: 20190114
  Transmission Date: 20190417
  Serious: Yes (Hospitalization)
  Sender: FDA-Public Use
  Company Number: RO-EMD SERONO-9060106

PATIENT
  Age: 51 Year
  Sex: Female

DRUGS (4)
  1. CONCOR [Concomitant]
     Active Substance: BISOPROLOL FUMARATE
     Indication: HYPERTENSION
     Route: 048
     Dates: start: 2015
  2. NOLIPREL                           /01421201/ [Concomitant]
     Indication: HYPERTENSION
     Route: 048
     Dates: start: 2015
  3. REBIF [Suspect]
     Active Substance: INTERFERON BETA-1A
     Indication: MULTIPLE SCLEROSIS
     Route: 058
     Dates: start: 200404, end: 201809
  4. REBIF [Suspect]
     Active Substance: INTERFERON BETA-1A
     Dosage: RE-INTRODUCED
     Route: 058
     Dates: start: 2018

REACTIONS (2)
  - Uterine disorder [Recovered/Resolved]
  - Urinary tract infection [Recovered/Resolved]

NARRATIVE: CASE EVENT DATE: 201809
